FAERS Safety Report 8608837 (Version 5)
Quarter: 2013Q4

REPORT INFORMATION
  Report Type: Report from Study
  Country: JP (occurrence: JP)
  Receive Date: 20120611
  Receipt Date: 20131111
  Transmission Date: 20140711
  Serious: Yes (Hospitalization)
  Sender: FDA-Public Use
  Company Number: JP-VERTEX PHARMACEUTICALS INC.-AE-2012-008502

PATIENT
  Age: 48 Year
  Sex: Male

DRUGS (14)
  1. VX-950 (TELAPREVIR) [Suspect]
     Indication: CHRONIC HEPATITIS C
     Dosage: 2250 MG, QD
     Route: 048
     Dates: start: 20120509, end: 20120731
  2. PEGINTRON [Suspect]
     Indication: CHRONIC HEPATITIS C
     Dosage: 1.5 ?G/KG, WEEK
     Route: 058
     Dates: start: 20120509
  3. REBETOL [Suspect]
     Indication: CHRONIC HEPATITIS C
     Dosage: 1000 MG, QD
     Route: 048
     Dates: start: 20120509, end: 20120530
  4. REBETOL [Suspect]
     Dosage: 800 MG, QD
     Route: 048
     Dates: start: 20120530
  5. PREDONINE [Suspect]
     Indication: RASH
     Dosage: 20 MG, QD
     Route: 048
     Dates: start: 20120512
  6. PREDONINE [Suspect]
     Dosage: 7.5 MG, QD
     Route: 048
     Dates: start: 20120627, end: 20120704
  7. XYZAL [Concomitant]
     Dosage: 5 MG, QD
     Route: 048
     Dates: end: 20120718
  8. PRIMPERAN [Concomitant]
     Dosage: 5 MG, QD/PRN
     Route: 048
     Dates: start: 20120718
  9. NOVORAPID [Concomitant]
     Dosage: 11 UNITS/DAY (ADJUSTED AS NEEDED BY MONITORING THE BLOOD-SUGAR LEVEL)
     Route: 042
     Dates: start: 20120530
  10. NOVORAPID [Concomitant]
     Dosage: 46 UNIT
     Route: 042
     Dates: start: 20120620
  11. AMOBAN [Concomitant]
     Dosage: 10 MG, QD/PRN
     Route: 048
     Dates: start: 20120613
  12. AMOBAN [Concomitant]
     Dosage: 5 MG, QD
     Route: 048
     Dates: start: 20120620
  13. NERISONA [Concomitant]
     Dosage: UNK, PRN
     Route: 061
     Dates: start: 20120620, end: 20120704
  14. LEVEMIR [Concomitant]
     Dosage: 6 UNITS/DAY
     Route: 042
     Dates: start: 20120620

REACTIONS (1)
  - Diabetes mellitus [Recovered/Resolved]
